FAERS Safety Report 10042936 (Version 1)
Quarter: 2014Q1

REPORT INFORMATION
  Report Type: Spontaneous
  Country: US (occurrence: US)
  Receive Date: 20140328
  Receipt Date: 20140328
  Transmission Date: 20141002
  Serious: Yes (Hospitalization, Other)
  Sender: FDA-Public Use
  Company Number: 2014SP000554

PATIENT
  Age: 70 Year
  Sex: Male
  Weight: 82.2 kg

DRUGS (10)
  1. OXALIPLATIN [Suspect]
     Indication: PANCREATIC CARCINOMA METASTATIC
     Route: 042
     Dates: start: 20130923, end: 20131106
  2. FLUOROURACIL [Suspect]
     Indication: PANCREATIC CARCINOMA METASTATIC
     Route: 042
     Dates: start: 20130923, end: 20131106
  3. FLUOROURACIL [Suspect]
     Indication: PANCREATIC CARCINOMA METASTATIC
     Route: 042
     Dates: start: 20130923, end: 20131106
  4. FOLINIC ACID [Suspect]
     Indication: PANCREATIC CARCINOMA METASTATIC
     Route: 042
     Dates: start: 20130923, end: 20131106
  5. PLAVIX [Concomitant]
  6. SIMVASTATIN [Concomitant]
  7. SPIRIVA [Concomitant]
  8. ULORIC [Concomitant]
  9. FISH OIL [Concomitant]
  10. OMEPRAZOLE [Concomitant]

REACTIONS (12)
  - Syncope [Unknown]
  - Orthostatic hypotension [Recovered/Resolved with Sequelae]
  - Diarrhoea [Recovered/Resolved with Sequelae]
  - Hypokalaemia [Unknown]
  - Renal failure acute [Recovering/Resolving]
  - Neutropenia [Recovered/Resolved with Sequelae]
  - Duodenal ulcer [Unknown]
  - Urinary tract infection [Unknown]
  - Pyrexia [Recovered/Resolved]
  - Thrombocytopenia [Unknown]
  - Nausea [Unknown]
  - Hiccups [Unknown]
